FAERS Safety Report 9351180 (Version 1)
Quarter: 2013Q2

REPORT INFORMATION
  Report Type: Report from Study
  Country: AU (occurrence: AU)
  Receive Date: 20130617
  Receipt Date: 20130617
  Transmission Date: 20140414
  Serious: Yes (Other)
  Sender: FDA-Public Use
  Company Number: AU-ROCHE-1235892

PATIENT
  Age: 58 Year
  Sex: Female

DRUGS (10)
  1. ACTEMRA [Suspect]
     Indication: RHEUMATOID ARTHRITIS
     Route: 042
     Dates: start: 20110218
  2. WARFARIN [Concomitant]
     Route: 048
  3. CRESTOR [Concomitant]
     Indication: BLOOD CHOLESTEROL INCREASED
     Route: 048
  4. ENDONE [Concomitant]
     Indication: PAIN
     Route: 048
  5. PROBITOR [Concomitant]
     Route: 065
  6. PERIACTINE [Concomitant]
     Route: 065
  7. ENDEP [Concomitant]
     Indication: DEPRESSION
     Route: 065
  8. NOTEN [Concomitant]
     Indication: HYPERTENSION
     Route: 065
  9. TRAMAL [Concomitant]
     Indication: PAIN
     Route: 065
  10. TEGRETOL [Concomitant]
     Indication: EPILEPSY
     Route: 065

REACTIONS (10)
  - Pain [Recovering/Resolving]
  - Joint swelling [Recovering/Resolving]
  - Lethargy [Recovering/Resolving]
  - Malaise [Unknown]
  - Pain [Unknown]
  - Decreased appetite [Unknown]
  - Local swelling [Unknown]
  - Arthralgia [Unknown]
  - Feeling of body temperature change [Unknown]
  - Fatigue [Unknown]
